FAERS Safety Report 7350435-2 (Version None)
Quarter: 2011Q1

REPORT INFORMATION
  Report Type: 
  Country: None (occurrence: None)
  Receive Date: 20110314
  Receipt Date: 20110301
  Transmission Date: 20110831
  Serious: Yes (Other)
  Sender: FDA-Public Use
  Company Number: CA-JNJFOC-20110301585

PATIENT

DRUGS (2)
  1. ACETAMINOPHEN [Suspect]
     Indication: DRUG EXPOSURE VIA BREAST MILK
     Route: 048
  2. ACETAMINOPHEN [Suspect]
     Route: 048

REACTIONS (3)
  - DRUG EXPOSURE VIA BREAST MILK [None]
  - DEPRESSED LEVEL OF CONSCIOUSNESS [None]
  - BREAST FEEDING [None]
